FAERS Safety Report 15710796 (Version 3)
Quarter: 2019Q1

REPORT INFORMATION
  Report Type: Spontaneous
  Country: US (occurrence: US)
  Receive Date: 20181211
  Receipt Date: 20190206
  Transmission Date: 20190417
  Serious: Yes (Other)
  Sender: FDA-Public Use
  Company Number: US-SA-2018SA334355

PATIENT
  Age: 64 Year
  Sex: Female

DRUGS (6)
  1. VITAMIN D3 [Concomitant]
     Active Substance: CHOLECALCIFEROL
  2. MULTIVITAMIN [VITAMINS NOS] [Concomitant]
  3. BENADRYL [Concomitant]
     Active Substance: DIPHENHYDRAMINE HYDROCHLORIDE
  4. IRON [Concomitant]
     Active Substance: IRON
  5. VITAMIN B12 [Concomitant]
     Active Substance: CYANOCOBALAMIN
  6. AUBAGIO [Suspect]
     Active Substance: TERIFLUNOMIDE
     Indication: MULTIPLE SCLEROSIS
     Dosage: 14 MG, QD
     Route: 048
     Dates: start: 20181031

REACTIONS (8)
  - Alopecia [Unknown]
  - Weight decreased [Unknown]
  - Pneumonia [Unknown]
  - Muscle spasms [Unknown]
  - Asthenia [Unknown]
  - Diarrhoea [Unknown]
  - Pain in extremity [Unknown]
  - Decreased interest [Unknown]

NARRATIVE: CASE EVENT DATE: 20181207
